FAERS Safety Report 4915739-9 (Version None)
Quarter: 2006Q1

REPORT INFORMATION
  Report Type: 
  Country: None (occurrence: None)
  Receive Date: 20060217
  Receipt Date: 20060207
  Transmission Date: 20060701
  Serious: Yes (Hospitalization)
  Sender: FDA-Public Use
  Company Number: NL-JNJFOC-20060202132

PATIENT
  Sex: Male

DRUGS (4)
  1. TRISPORAL [Suspect]
     Indication: ONYCHOMYCOSIS
     Route: 048
     Dates: start: 20051219, end: 20051221
  2. ACIDUM ACETYLSALICYLICUM CARDIO [Suspect]
     Indication: ANGINA PECTORIS
     Route: 048
     Dates: start: 20000101
  3. SELEKTINE [Concomitant]
     Route: 048
     Dates: start: 20000101
  4. ENALAPRIL [Concomitant]
     Route: 048
     Dates: start: 20000101

REACTIONS (1)
  - EPISTAXIS [None]
